FAERS Safety Report 9425578 (Version 1)
Quarter: 2013Q3

REPORT INFORMATION
  Report Type: Spontaneous
  Country: US (occurrence: US)
  Receive Date: 20130729
  Receipt Date: 20130729
  Transmission Date: 20140515
  Serious: No
  Sender: FDA-Public Use
  Company Number: US-MYLANLABS-2013S1004008

PATIENT
  Age: 74 Year
  Sex: Male
  Weight: 79.38 kg

DRUGS (6)
  1. LEVOTHYROXINE SODIUM TABLETS, USP [Suspect]
     Indication: HYPOTHYROIDISM
     Route: 048
     Dates: start: 201107, end: 201301
  2. LEVOTHYROXINE SODIUM TABLETS, USP [Suspect]
     Indication: HYPOTHYROIDISM
     Route: 048
     Dates: start: 201301, end: 20130213
  3. LEVOTHYROXINE SODIUM TABLETS, USP [Suspect]
     Indication: HYPOTHYROIDISM
     Route: 048
     Dates: start: 20130214
  4. LEXAPRO [Concomitant]
     Indication: DEPRESSION
     Dosage: TAKES HALF OF A 10MG TABLET
     Route: 048
  5. OXYGEN [Concomitant]
     Indication: DYSPNOEA
  6. LORAZEPAM [Concomitant]
     Indication: INSOMNIA
     Dosage: TAKES HALF OF 0.5MG TABLET
     Route: 048

REACTIONS (4)
  - Weight decreased [Recovered/Resolved]
  - Asthenia [Not Recovered/Not Resolved]
  - Ageusia [Not Recovered/Not Resolved]
  - Underdose [Not Recovered/Not Resolved]
